FAERS Safety Report 5465271-1 (Version None)
Quarter: 2007Q3

REPORT INFORMATION
  Report Type: 
  Country: None (occurrence: None)
  Receive Date: 20070924
  Receipt Date: 20070915
  Transmission Date: 20080115
  Serious: Yes (Hospitalization, Other)
  Sender: FDA-Public Use
  Company Number: PHEH2007US12022

PATIENT
  Age: 80 Year
  Sex: Male

DRUGS (1)
  1. EXJADE [Suspect]
     Indication: IRON OVERLOAD
     Dosage: 1000 MG, QD
     Route: 048
     Dates: start: 20060524

REACTIONS (7)
  - BLAST CELLS PRESENT [None]
  - BLOOD SMEAR TEST ABNORMAL [None]
  - LEUKAEMIA [None]
  - LUNG INFILTRATION [None]
  - MALIGNANT TRANSFORMATION [None]
  - NASOPHARYNGITIS [None]
  - PNEUMONITIS [None]
